FAERS Safety Report 4694686-4 (Version None)
Quarter: 2005Q2

REPORT INFORMATION
  Report Type: 
  Country: None (occurrence: None)
  Receive Date: 20050620
  Receipt Date: 20050606
  Transmission Date: 20051028
  Serious: Yes (Life-Threatening)
  Sender: FDA-Public Use
  Company Number: AT-GLAXOSMITHKLINE-B0384595A

PATIENT
  Age: 29 Year
  Sex: Male

DRUGS (6)
  1. QUILONORM RETARD [Suspect]
     Indication: DRUG USE FOR UNKNOWN INDICATION
     Route: 048
     Dates: start: 20041130, end: 20041216
  2. ZUCLOPENTHIXOL [Concomitant]
     Indication: DRUG USE FOR UNKNOWN INDICATION
     Route: 048
     Dates: start: 20041129, end: 20041203
  3. RISPERDAL [Concomitant]
     Indication: DRUG USE FOR UNKNOWN INDICATION
     Route: 065
     Dates: start: 20041203
  4. LOVENOX [Concomitant]
     Indication: DRUG USE FOR UNKNOWN INDICATION
     Dates: start: 20041130, end: 20041216
  5. DEPAKENE [Concomitant]
     Indication: DRUG USE FOR UNKNOWN INDICATION
     Route: 048
     Dates: start: 20041130, end: 20041216
  6. TEMESTA [Concomitant]
     Dosage: 2.5MG PER DAY
     Route: 048
     Dates: start: 20041204, end: 20041204

REACTIONS (3)
  - BACK PAIN [None]
  - PULMONARY EMBOLISM [None]
  - SHOULDER PAIN [None]
